FAERS Safety Report 12173793 (Version 1)
Quarter: 2016Q1

REPORT INFORMATION
  Report Type: Spontaneous
  Country: RO (occurrence: RO)
  Receive Date: 20160314
  Receipt Date: 20160314
  Transmission Date: 20160526
  Serious: Yes (Other)
  Sender: FDA-Public Use
  Company Number: RO-IPSEN BIOPHARMACEUTICALS, INC.-2016-02100

PATIENT
  Age: 58 Year
  Sex: Male
  Weight: 80 kg

DRUGS (2)
  1. SOMATULINE AUTOGEL [Suspect]
     Active Substance: LANREOTIDE ACETATE
     Indication: ACROMEGALY
     Dosage: 120 MG
     Route: 058
     Dates: start: 20130903, end: 20160202
  2. PEGVISOMANT [Concomitant]
     Active Substance: PEGVISOMANT
     Dates: start: 20150406

REACTIONS (1)
  - Injection site abscess [Recovering/Resolving]

NARRATIVE: CASE EVENT DATE: 20160211
